FAERS Safety Report 5123932-8 (Version None)
Quarter: 2006Q3

REPORT INFORMATION
  Report Type: 
  Country: None (occurrence: None)
  Receive Date: 20060811
  Receipt Date: 20060526
  Transmission Date: 20061208
  Serious: No
  Sender: FDA-Public Use
  Company Number: S06-USA-02118-01

PATIENT
  Age: 72 Year
  Sex: Male

DRUGS (4)
  1. NAMENDA [Suspect]
     Indication: DEMENTIA ALZHEIMER'S TYPE
     Dosage: 10 MG BID PO
     Route: 048
     Dates: start: 20060201, end: 20060401
  2. NAMENDA [Suspect]
     Indication: DEMENTIA ALZHEIMER'S TYPE
     Dosage: 10 MG BID PO
     Route: 048
     Dates: start: 20060401, end: 20060527
  3. ARICEPT (DONEPEZIL HYDRPCJ;PRODE) [Concomitant]
  4. MULTIPLE MEDICATIONS [Concomitant]

REACTIONS (1)
  - DIARRHOEA [None]
